FAERS Safety Report 9470026 (Version 1)
Quarter: 2013Q3

REPORT INFORMATION
  Report Type: Spontaneous
  Country: US (occurrence: US)
  Receive Date: 20130822
  Receipt Date: 20130822
  Transmission Date: 20140515
  Serious: No
  Sender: FDA-Public Use
  Company Number: US-BAYER-2013-100499

PATIENT
  Sex: Female

DRUGS (1)
  1. MIRENA [Suspect]
     Dosage: 20 MCG/24HR, CONT
     Route: 015

REACTIONS (12)
  - Dizziness [None]
  - Pollakiuria [None]
  - Dry throat [None]
  - Dyspnoea [None]
  - Abdominal pain lower [None]
  - Nausea [None]
  - Vomiting [None]
  - Decreased appetite [None]
  - Headache [None]
  - Anger [None]
  - Dysuria [None]
  - Chest discomfort [None]
